FAERS Safety Report 16405950 (Version 4)
Quarter: 2019Q3

REPORT INFORMATION
  Report Type: Spontaneous
  Country: JP (occurrence: JP)
  Receive Date: 20190607
  Receipt Date: 20190909
  Transmission Date: 20191004
  Serious: Yes (Life-Threatening)
  Sender: FDA-Public Use
  Company Number: JP-CELGENEUS-JPN-20190511437

PATIENT
  Age: 73 Year
  Sex: Female
  Weight: 44.8 kg

DRUGS (11)
  1. POMALYST [Suspect]
     Active Substance: POMALIDOMIDE
     Dosage: 3 MILLIGRAM
     Route: 048
     Dates: start: 20190103, end: 20190123
  2. AMLODIPINE [Concomitant]
     Active Substance: AMLODIPINE BESYLATE
     Indication: HYPERTENSION
     Dosage: 5 MILLIGRAM
     Route: 048
  3. LANSOPRAZOLE. [Concomitant]
     Active Substance: LANSOPRAZOLE
     Indication: PROPHYLAXIS
     Dosage: 15 MILLIGRAM
     Route: 048
  4. LENADEX [Suspect]
     Active Substance: DEXAMETHASONE ACETATE
     Indication: PLASMA CELL MYELOMA
     Dosage: 20 MILLIGRAM
     Route: 048
     Dates: start: 20181206, end: 20190207
  5. OXYCODONE [Concomitant]
     Active Substance: OXYCODONE
     Indication: BACK PAIN
     Dosage: 20 MILLIGRAM
     Route: 048
     Dates: end: 20190722
  6. POMALYST [Suspect]
     Active Substance: POMALIDOMIDE
     Dosage: 4 MILLIGRAM
     Route: 048
     Dates: start: 20190131, end: 20190210
  7. JANUVIA [Concomitant]
     Active Substance: SITAGLIPTIN PHOSPHATE
     Indication: TYPE 2 DIABETES MELLITUS
     Dosage: 50 MILLIGRAM
     Route: 048
  8. LUNESTA [Concomitant]
     Active Substance: ESZOPICLONE
     Indication: INSOMNIA
     Dosage: 2 MILLIGRAM
     Route: 048
  9. ACICLOVIR [Concomitant]
     Active Substance: ACYCLOVIR
     Indication: ANTIVIRAL PROPHYLAXIS
     Dosage: 200 MILLIGRAM
     Route: 048
  10. POMALYST [Suspect]
     Active Substance: POMALIDOMIDE
     Indication: PLASMA CELL MYELOMA
     Dosage: 2 MILLIGRAM
     Route: 048
     Dates: start: 20181206, end: 20181226
  11. WARFARIN [Concomitant]
     Active Substance: WARFARIN
     Indication: THROMBOSIS PROPHYLAXIS
     Dosage: 2 MILLIGRAM
     Route: 048
     Dates: end: 20190210

REACTIONS (2)
  - Large intestine perforation [Recovered/Resolved]
  - Colonic abscess [Recovered/Resolved]

NARRATIVE: CASE EVENT DATE: 20190211
